FAERS Safety Report 7481278-7 (Version None)
Quarter: 2011Q2

REPORT INFORMATION
  Report Type: 
  Country: None (occurrence: None)
  Receive Date: 20110506
  Receipt Date: 20110420
  Transmission Date: 20111010
  Serious: Yes (Other)
  Sender: FDA-Public Use
  Company Number: 2009S1002580

PATIENT
  Age: 49 Year
  Sex: Female

DRUGS (11)
  1. TOPROL-XL [Concomitant]
  2. PRILOSEC [Concomitant]
  3. LISINOPRIL [Concomitant]
  4. DULCOLAX [Suspect]
     Indication: COLONOSCOPY
     Dosage: 2 UNIT, TOTAL, PO
     Route: 048
     Dates: start: 20030818, end: 20030818
  5. DULCOLAX [Suspect]
     Indication: OESOPHAGOSCOPY
     Dosage: 2 UNIT, TOTAL, PO
     Route: 048
     Dates: start: 20030818, end: 20030818
  6. CLONIDINE [Concomitant]
  7. TRICOR [Concomitant]
  8. GLUCOPHAGE [Concomitant]
  9. PHOSPHOSODA FLAVOR NOT SPECIFIED [Suspect]
     Indication: OESOPHAGOSCOPY
     Dosage: 90 ML, TOTAL, PO
     Route: 048
     Dates: start: 20030818, end: 20030818
  10. PHOSPHOSODA FLAVOR NOT SPECIFIED [Suspect]
     Indication: COLONOSCOPY
     Dosage: 90 ML, TOTAL, PO
     Route: 048
     Dates: start: 20030818, end: 20030818
  11. GLYBURIDE [Concomitant]

REACTIONS (5)
  - ANAEMIA [None]
  - RENAL FAILURE ACUTE [None]
  - HYPERKALAEMIA [None]
  - DIABETIC NEPHROPATHY [None]
  - RENAL FAILURE CHRONIC [None]
